FAERS Safety Report 5460162-4 (Version None)
Quarter: 2007Q3

REPORT INFORMATION
  Report Type: 
  Country: None (occurrence: None)
  Receive Date: 20070919
  Receipt Date: 20070524
  Transmission Date: 20080115
  Serious: Yes (Other)
  Sender: FDA-Public Use
  Company Number: US-ASTRAZENECA-2007UW12899

PATIENT
  Sex: Female

DRUGS (4)
  1. SEROQUEL [Suspect]
     Indication: BIPOLAR DISORDER
     Route: 048
  2. SEROQUEL [Suspect]
     Route: 048
     Dates: start: 20070522
  3. PROZAC [Concomitant]
  4. XANAX [Concomitant]

REACTIONS (3)
  - AGITATION [None]
  - ANTISOCIAL BEHAVIOUR [None]
  - SUICIDAL IDEATION [None]
